FAERS Safety Report 6449961-X (Version None)
Quarter: 2009Q4

REPORT INFORMATION
  Report Type: 
  Country: None (occurrence: None)
  Receive Date: 20091120
  Receipt Date: 20091120
  Transmission Date: 20100525
  Serious: Yes (Other)
  Sender: FDA-Public Use
  Company Number: None

PATIENT
  Age: 59 Year
  Sex: Female
  Weight: 90.7194 kg

DRUGS (1)
  1. JANUMET [Suspect]
     Indication: TYPE 2 DIABETES MELLITUS
     Dosage: 2 TIMES PER DAY
     Dates: start: 20070815, end: 20081031

REACTIONS (6)
  - COLITIS [None]
  - CONSTIPATION [None]
  - DEHYDRATION [None]
  - HAEMOPTYSIS [None]
  - MUCOUS STOOLS [None]
  - RETCHING [None]
